FAERS Safety Report 4366230-2 (Version None)
Quarter: 2004Q2

REPORT INFORMATION
  Report Type: 
  Country: None (occurrence: None)
  Receive Date: 20040527
  Receipt Date: 20040427
  Transmission Date: 20050107
  Serious: No
  Sender: FDA-Public Use
  Company Number: US-BRISTOL-MYERS SQUIBB COMPANY-12573358

PATIENT
  Age: 42 Year
  Sex: Female

DRUGS (1)
  1. DEFINITY [Suspect]
     Indication: CARDIAC STRESS TEST
     Route: 042
     Dates: start: 20040427, end: 20040427

REACTIONS (3)
  - DYSPNOEA [None]
  - HOT FLUSH [None]
  - RASH [None]
